FAERS Safety Report 7651054-0 (Version None)
Quarter: 2011Q3

REPORT INFORMATION
  Report Type: 
  Country: None (occurrence: None)
  Receive Date: 20110802
  Receipt Date: 20110728
  Transmission Date: 20111222
  Serious: Yes (Life-Threatening)
  Sender: FDA-Public Use
  Company Number: IT-PFIZER INC-2011134898

PATIENT
  Age: 60 Year
  Sex: Female

DRUGS (8)
  1. LASIX [Concomitant]
     Dosage: 25 MG, UNK
  2. DOXYCYCLINE HYCLATE [Suspect]
     Indication: PYREXIA
     Dosage: 100 MG, 1X/DAY
     Route: 048
     Dates: start: 20110608, end: 20110610
  3. IRBESARTAN [Concomitant]
     Dosage: 300 MG, UNK
     Route: 048
  4. ASPIRIN [Concomitant]
     Dosage: 100 MG, UNK
     Route: 048
  5. ATORVASTATIN CALCIUM [Concomitant]
  6. ALLOPURINOL [Suspect]
     Indication: HYPERURICAEMIA
     Dosage: 150 MG, 1X/DAY
     Route: 048
     Dates: start: 20110528, end: 20110608
  7. BARNIDIPINE HYDROCHLORIDE [Concomitant]
     Dosage: 5 MG, UNK
     Route: 048
  8. DOXYCYCLINE HYCLATE [Suspect]
     Indication: RICKETTSIOSIS

REACTIONS (1)
  - TOXIC EPIDERMAL NECROLYSIS [None]
